FAERS Safety Report 25281240 (Version 1)
Quarter: 2025Q2

REPORT INFORMATION
  Report Type: Spontaneous
  Country: EG (occurrence: EG)
  Receive Date: 20250508
  Receipt Date: 20250508
  Transmission Date: 20250717
  Serious: Yes (Life-Threatening, Hospitalization)
  Sender: HIKMA
  Company Number: EG-HIKMA PHARMACEUTICALS-EG-H14001-25-04035

PATIENT
  Age: 33 Year
  Sex: Female
  Weight: 87 kg

DRUGS (2)
  1. PACLITAXEL [Suspect]
     Active Substance: PACLITAXEL
     Indication: Breast cancer
     Dosage: 142.5 MILLIGRAM, WEEKLY, WEEK 1 ?BY 5 ?MINUTES
     Route: 042
     Dates: start: 20250324
  2. PACLITAXEL [Suspect]
     Active Substance: PACLITAXEL
     Dosage: 142.5 MILLIGRAM, WEEKLY, WEEK 1 ?BY 5 ?MINUTES
     Route: 042
     Dates: start: 20250324

REACTIONS (5)
  - Ocular hyperaemia [Recovered/Resolved]
  - Drug hypersensitivity [Recovered/Resolved]
  - Tachycardia [Recovered/Resolved]
  - Hypertension [Recovered/Resolved]
  - Dyspnoea [Recovered/Resolved]

NARRATIVE: CASE EVENT DATE: 20250324
